FAERS Safety Report 19580916 (Version 1)
Quarter: 2021Q3

REPORT INFORMATION
  Report Type: Spontaneous
  Country: US (occurrence: US)
  Receive Date: 20210719
  Receipt Date: 20210719
  Transmission Date: 20211014
  Serious: Yes (Hospitalization, Other)
  Sender: FDA-Public Use
  Company Number: None

PATIENT
  Age: 38 Year
  Sex: Female
  Weight: 50.4 kg

DRUGS (1)
  1. MORPHINE INJECTION 2 MG (2 MG INTRAVENOUS GIVEN 7/17/21 0302) [Suspect]
     Active Substance: MORPHINE
     Indication: ABDOMINAL DISCOMFORT
     Dosage: ?          QUANTITY:2 INJECTION(S);?
     Dates: start: 20210717, end: 20210717

REACTIONS (3)
  - Maternal exposure during pregnancy [None]
  - Abortion spontaneous [None]
  - Foetal exposure during pregnancy [None]

NARRATIVE: CASE EVENT DATE: 20210717
